FAERS Safety Report 9467508 (Version 2)
Quarter: 2013Q3

REPORT INFORMATION
  Report Type: Report from Study
  Country: US (occurrence: US)
  Receive Date: 20130821
  Receipt Date: 20130821
  Transmission Date: 20140515
  Serious: Yes (Other)
  Sender: FDA-Public Use
  Company Number: US-ROCHE-1249175

PATIENT
  Age: 46 Year
  Sex: Male

DRUGS (2)
  1. LUCENTIS [Suspect]
     Indication: CHOROIDAL NEOVASCULARISATION
     Route: 050
     Dates: start: 20091103
  2. LUCENTIS [Suspect]
     Indication: CHOROIDAL NEOVASCULARISATION

REACTIONS (7)
  - Visual field defect [Unknown]
  - Ophthalmological examination abnormal [Unknown]
  - Visual acuity reduced [Unknown]
  - Eye pain [Unknown]
  - Visual impairment [Unknown]
  - Vitreous floaters [Unknown]
  - Photopsia [Unknown]
